FAERS Safety Report 23711470 (Version 1)
Quarter: 2024Q2

REPORT INFORMATION
  Report Type: Spontaneous
  Country: US (occurrence: US)
  Receive Date: 20240405
  Receipt Date: 20240405
  Transmission Date: 20240716
  Serious: Yes (Hospitalization, Other)
  Sender: FDA-Public Use
  Company Number: US-Accord-416508

PATIENT
  Age: 5 Decade
  Sex: Male

DRUGS (3)
  1. MYCOPHENOLATE MOFETIL [Suspect]
     Active Substance: MYCOPHENOLATE MOFETIL
     Indication: Product used for unknown indication
  2. TACROLIMUS [Suspect]
     Active Substance: TACROLIMUS
     Indication: Product used for unknown indication
     Dosage: 5-7 NG/ML
  3. TACROLIMUS [Suspect]
     Active Substance: TACROLIMUS
     Dosage: 3-5 NG/ML

REACTIONS (5)
  - Diverticulitis [Unknown]
  - Diffuse large B-cell lymphoma [Unknown]
  - Campylobacter infection [Unknown]
  - Bacterial infection [Unknown]
  - Gastrointestinal haemorrhage [Unknown]
